FAERS Safety Report 5293097-0 (Version None)
Quarter: 2007Q2

REPORT INFORMATION
  Report Type: 
  Country: None (occurrence: None)
  Receive Date: 20070411
  Receipt Date: 20070405
  Transmission Date: 20071010
  Serious: Yes (Life-Threatening)
  Sender: FDA-Public Use
  Company Number: JP-BAYER-200710188BYL

PATIENT
  Age: 61 Year
  Sex: Male
  Weight: 80 kg

DRUGS (4)
  1. CIPROFLOXACIN [Suspect]
     Indication: HYPERTHERMIA
     Dosage: TOTAL DAILY DOSE: 600 MG  UNIT DOSE: 200 MG
     Route: 048
     Dates: start: 20070224, end: 20070227
  2. TOMIRON [Suspect]
     Indication: HYPERTHERMIA
     Dosage: UNIT DOSE: 100 MG
     Route: 048
     Dates: start: 20070221, end: 20070223
  3. FLAVERIC [Concomitant]
     Dosage: UNIT DOSE: 20 MG
     Route: 048
     Dates: start: 20070221, end: 20070227
  4. PONTAL [Concomitant]
     Route: 048
     Dates: start: 20070221, end: 20070227

REACTIONS (1)
  - RENAL FAILURE ACUTE [None]
